FAERS Safety Report 7498976-1 (Version None)
Quarter: 2011Q2

REPORT INFORMATION
  Report Type: 
  Country: None (occurrence: None)
  Receive Date: 20110524
  Receipt Date: 20091120
  Transmission Date: 20111010
  Serious: Yes (Death, Other)
  Sender: FDA-Public Use
  Company Number: US-BAYER-200940047NA

PATIENT
  Age: 67 Year
  Sex: Female
  Weight: 77 kg

DRUGS (30)
  1. PROTONIX [Concomitant]
     Dosage: 40 MG EVERY DAY
     Route: 048
  2. TRASYLOL [Suspect]
     Dosage: 25 ML PER HOUR
     Route: 042
     Dates: start: 20051121, end: 20051121
  3. TOPROL-XL [Concomitant]
     Dosage: 25-50 MG EVERY DAY
     Route: 048
  4. BENADRYL [Concomitant]
     Dosage: 50 MG
     Route: 048
  5. RED BLOOD CELLS [Concomitant]
     Dosage: 5 UNITS
     Route: 042
     Dates: start: 20051121, end: 20051121
  6. LOTREL [Concomitant]
     Dosage: 10/20 MG
     Route: 048
  7. AVANDAMET [Concomitant]
     Dosage: 4-1000 MG
     Route: 048
  8. LISINOPRIL [Concomitant]
     Dosage: 20 MG
     Route: 048
  9. LABETALOL [Concomitant]
     Dosage: 20 MG/4 ML
     Route: 042
  10. GLIPIZIDE [Concomitant]
     Dosage: 5 MG, QD
     Route: 048
  11. GLUCAGON [Concomitant]
     Dosage: 1 MG
     Route: 048
  12. LEVAQUIN [Concomitant]
     Dosage: 500 MG
     Route: 048
  13. HEPARIN [Concomitant]
  14. NITROGLYCERIN [Concomitant]
     Dosage: 150 MCG
     Route: 060
  15. INSULIN [Concomitant]
     Dosage: SLIDING SCALE
     Route: 058
  16. PREDNISONE [Concomitant]
     Dosage: 30 MG
     Route: 048
  17. IMDUR [Concomitant]
     Dosage: 60 MG, QD
     Route: 048
  18. LIPITOR [Concomitant]
     Dosage: 20 MG EVERY DAY
     Route: 048
  19. FLUCONAZOLE [Concomitant]
     Dosage: 100 MG
     Route: 048
  20. DIAZEPAM [Concomitant]
     Dosage: 2.5 MG/0.5MG  1/2 TAB
     Route: 048
  21. PLATELETS [Concomitant]
     Dosage: 2 UNITS
     Route: 042
     Dates: start: 20051121, end: 20051121
  22. ACETAMINOPHEN [Concomitant]
     Dosage: 650 MG 2 TABS
     Route: 048
  23. PLASMA [Concomitant]
     Dosage: 6 UNITS
     Route: 042
     Dates: start: 20051121, end: 20051121
  24. GLUCOTROL XL [Concomitant]
     Dosage: 15 MG, UNK
     Route: 048
  25. TRASYLOL [Suspect]
     Indication: CORONARY ARTERY BYPASS
     Dosage: 1 ML LOADING DOSE
     Route: 042
     Dates: start: 20051121, end: 20051121
  26. TRASYLOL [Suspect]
     Dosage: 100 ML LOADING DOSE
     Route: 042
     Dates: start: 20051121, end: 20051121
  27. AMLODIPINE [Concomitant]
     Dosage: 10 MG
     Route: 048
  28. OPTIRAY 300 [Concomitant]
     Dosage: UNK
     Dates: start: 20051118, end: 20051118
  29. ASPIRIN [Concomitant]
     Dosage: 325 MG
     Route: 048
  30. POTASSIUM CHLORIDE [Concomitant]
     Dosage: 20-40 MEQ/100 ML
     Route: 042

REACTIONS (12)
  - MYOCARDIAL INFARCTION [None]
  - INJURY [None]
  - UNEVALUABLE EVENT [None]
  - RENAL FAILURE [None]
  - ANXIETY [None]
  - HYPOXIC-ISCHAEMIC ENCEPHALOPATHY [None]
  - PAIN [None]
  - DEATH [None]
  - CEREBROVASCULAR ACCIDENT [None]
  - FEAR [None]
  - DEPRESSION [None]
  - ANHEDONIA [None]
